FAERS Safety Report 10469185 (Version 1)
Quarter: 2014Q3

REPORT INFORMATION
  Report Type: Spontaneous
  Country: US (occurrence: None)
  Receive Date: 20140829
  Receipt Date: 20140829
  Transmission Date: 20150326
  Serious: Yes (Other)
  Sender: FDA-Public Use
  Company Number: PHEH2013US020035

PATIENT
  Age: 70 Year
  Sex: Female

DRUGS (7)
  1. BYSTOLIC [Concomitant]
     Active Substance: NEBIVOLOL HYDROCHLORIDE
  2. WARFARIN (WARFARIN) [Concomitant]
     Active Substance: WARFARIN
  3. VITAMIN D (ERGOCALCIFEROL) [Concomitant]
     Active Substance: ERGOCALCIFEROL
  4. BABY ASPIRIN (ACETYLSALICYLIC ACID) [Concomitant]
     Active Substance: ASPIRIN
  5. MULTI-VIT (VITAMINS NOS) [Concomitant]
     Active Substance: VITAMINS
  6. COQ10 (UBIDECARENONE) [Concomitant]
     Active Substance: UBIDECARENONE
  7. EXFORGE [Suspect]
     Active Substance: AMLODIPINE BESYLATE\VALSARTAN
     Dosage: 1 DF, (320 MG VALS AND 10 MG HYDRO))

REACTIONS (2)
  - Blood pressure increased [None]
  - Drug ineffective [None]
